FAERS Safety Report 10192108 (Version 3)
Quarter: 2014Q3

REPORT INFORMATION
  Report Type: Spontaneous
  Country: US (occurrence: US)
  Receive Date: 20140523
  Receipt Date: 20140731
  Transmission Date: 20150326
  Serious: Yes (Hospitalization)
  Sender: FDA-Public Use
  Company Number: US-GLAXOSMITHKLINE-A1073695A

PATIENT
  Age: 49 Year
  Sex: Female

DRUGS (16)
  1. VITAMIN D3 [Concomitant]
     Active Substance: CHOLECALCIFEROL
  2. PLAQUENIL [Concomitant]
     Active Substance: HYDROXYCHLOROQUINE SULFATE
  3. DEXILANT [Concomitant]
     Active Substance: DEXLANSOPRAZOLE
  4. FOLIC ACID. [Concomitant]
     Active Substance: FOLIC ACID
  5. ORTHO PREFEST [Concomitant]
  6. VITAMIN C [Concomitant]
     Active Substance: ASCORBIC ACID
  7. METOPROLOL [Concomitant]
     Active Substance: METOPROLOL
  8. METHOTREXATE [Concomitant]
     Active Substance: METHOTREXATE
  9. HCTZ [Concomitant]
     Active Substance: HYDROCHLOROTHIAZIDE
  10. FLEXERIL [Concomitant]
     Active Substance: CYCLOBENZAPRINE HYDROCHLORIDE
  11. BENLYSTA [Suspect]
     Active Substance: BELIMUMAB
     Indication: SYSTEMIC LUPUS ERYTHEMATOSUS
     Dosage: 120MG CYCLIC
     Route: 042
     Dates: start: 201401
  12. MELOXICAM. [Concomitant]
     Active Substance: MELOXICAM
  13. MAGNESIUM [Concomitant]
     Active Substance: MAGNESIUM
  14. OMEGA FISH OIL [Concomitant]
     Active Substance: FISH OIL\OMEGA-3 FATTY ACIDS
  15. CALCIUM [Concomitant]
     Active Substance: CALCIUM
  16. BENADRYL [Concomitant]
     Active Substance: DIPHENHYDRAMINE HYDROCHLORIDE

REACTIONS (7)
  - Rash [Recovered/Resolved]
  - Influenza [Recovered/Resolved]
  - Systemic lupus erythematosus [Recovered/Resolved]
  - Bronchitis [Recovered/Resolved]
  - Sneezing [Recovered/Resolved]
  - Eye inflammation [Recovered/Resolved]
  - Systemic lupus erythematosus rash [Recovered/Resolved]

NARRATIVE: CASE EVENT DATE: 2014
